FAERS Safety Report 9394607 (Version 2)
Quarter: 2013Q3

REPORT INFORMATION
  Report Type: Spontaneous
  Country: US (occurrence: US)
  Receive Date: 20130711
  Receipt Date: 20130905
  Transmission Date: 20140515
  Serious: Yes (Other)
  Sender: FDA-Public Use
  Company Number: US-BAYER-2013-082759

PATIENT
  Age: 27 Year
  Sex: Female
  Weight: 77.55 kg

DRUGS (1)
  1. MIRENA [Suspect]
     Indication: CONTRACEPTION
     Dosage: 20 MCG/24HR, CONT
     Route: 015
     Dates: start: 20050708, end: 20060712

REACTIONS (10)
  - Device dislocation [None]
  - Vaginal haemorrhage [None]
  - Abdominal pain lower [None]
  - Abdominal pain [None]
  - Nausea [None]
  - Procedural pain [None]
  - Malaise [None]
  - Vaginal discharge [None]
  - Scar [None]
  - Off label use [None]
